FAERS Safety Report 24454468 (Version 2)
Quarter: 2024Q4

REPORT INFORMATION
  Report Type: Spontaneous
  Country: US (occurrence: US)
  Receive Date: 20241017
  Receipt Date: 20241018
  Transmission Date: 20250114
  Serious: No
  Sender: ROCHE
  Company Number: US-ROCHE-3473819

PATIENT
  Age: 68 Year
  Sex: Male

DRUGS (15)
  1. RITUXIMAB [Suspect]
     Active Substance: RITUXIMAB
     Indication: Follicular lymphoma
     Route: 065
  2. BENDAMUSTINE [Suspect]
     Active Substance: BENDAMUSTINE
     Indication: Follicular lymphoma
     Route: 065
  3. IBRITUMOMAB TIUXETAN [Suspect]
     Active Substance: IBRITUMOMAB TIUXETAN
     Indication: Follicular lymphoma
     Route: 065
  4. DOXORUBICIN [Concomitant]
     Active Substance: DOXORUBICIN
  5. BLEOMYCIN [Concomitant]
     Active Substance: BLEOMYCIN SULFATE
  6. VINBLASTINE [Concomitant]
     Active Substance: VINBLASTINE
  7. DACARBAZINE [Concomitant]
     Active Substance: DACARBAZINE
  8. BRENTUXIMAB [Concomitant]
     Active Substance: BRENTUXIMAB
  9. GEMCITABINE [Concomitant]
     Active Substance: GEMCITABINE
  10. NAVELBINE [Concomitant]
     Active Substance: VINORELBINE TARTRATE
  11. IPILIMUMAB [Concomitant]
     Active Substance: IPILIMUMAB
  12. NIVOLUMAB [Concomitant]
     Active Substance: NIVOLUMAB
  13. IFOSFAMIDE [Concomitant]
     Active Substance: IFOSFAMIDE
  14. CARBOPLATIN [Concomitant]
     Active Substance: CARBOPLATIN
  15. ETOPOSIDE PHOSPHATE [Concomitant]
     Active Substance: ETOPOSIDE PHOSPHATE

REACTIONS (1)
  - Disease progression [Unknown]
